FAERS Safety Report 7141599-4 (Version None)
Quarter: 2010Q4

REPORT INFORMATION
  Report Type: 
  Country: None (occurrence: None)
  Receive Date: 20101207
  Receipt Date: 20101126
  Transmission Date: 20110411
  Serious: Yes (Other)
  Sender: FDA-Public Use
  Company Number: PHHO2010AR14215

PATIENT
  Sex: Female
  Weight: 61 kg

DRUGS (4)
  1. FTY 720 FTY+ [Suspect]
     Indication: MULTIPLE SCLEROSIS
     Dosage: UNK
     Route: 048
     Dates: start: 20080617, end: 20100318
  2. FTY 720 FTY+ [Suspect]
     Dosage: 0.5MG
     Route: 048
     Dates: start: 20100319, end: 20100916
  3. TOPIRAMATE [Concomitant]
     Indication: PROPHYLAXIS
     Dosage: UNK
     Dates: end: 20100614
  4. DIANE - 35 [Concomitant]
     Dosage: UNK
     Dates: end: 20100915

REACTIONS (2)
  - DRUG EXPOSURE DURING PREGNANCY [None]
  - FOETAL DISORDER [None]
